FAERS Safety Report 11352204 (Version 1)
Quarter: 2015Q3

REPORT INFORMATION
  Report Type: Spontaneous
  Country: US (occurrence: US)
  Receive Date: 20150807
  Receipt Date: 20150807
  Transmission Date: 20151125
  Serious: No
  Sender: FDA-Public Use
  Company Number: US-JNJFOC-20141201316

PATIENT
  Age: 67 Year
  Sex: Female

DRUGS (2)
  1. ROGAINE UNSPECIFIED [Suspect]
     Active Substance: MINOXIDIL
     Route: 061
  2. ROGAINE UNSPECIFIED [Suspect]
     Active Substance: MINOXIDIL
     Indication: HAIR GROWTH ABNORMAL
     Route: 061

REACTIONS (4)
  - Product use issue [Unknown]
  - Tremor [Unknown]
  - Skin burning sensation [Not Recovered/Not Resolved]
  - Rash [Not Recovered/Not Resolved]
